FAERS Safety Report 8214401-7 (Version None)
Quarter: 2012Q1

REPORT INFORMATION
  Report Type: 
  Country: None (occurrence: None)
  Receive Date: 20120227
  Receipt Date: 20111129
  Transmission Date: 20120608
  Serious: No
  Sender: FDA-Public Use
  Company Number: 341449

PATIENT
  Age: 61 Year
  Sex: Male

DRUGS (2)
  1. PLAVIX [Concomitant]
  2. VICTOZA [Suspect]
     Indication: PRODUCT USED FOR UNKNOWN INDICATION
     Dosage: 1.8 MG, UNK, SUBCUTANEOUS
     Route: 058

REACTIONS (4)
  - CHILLS [None]
  - DECREASED APPETITE [None]
  - WEIGHT DECREASED [None]
  - INJECTION SITE HAEMATOMA [None]
